FAERS Safety Report 23510735 (Version 1)
Quarter: 2024Q1

REPORT INFORMATION
  Report Type: Other
  Country: CN (occurrence: None)
  Receive Date: 20240211
  Receipt Date: 20240211
  Transmission Date: 20240410
  Serious: Yes (Other)
  Sender: FDA-Public Use
  Company Number: CN-ROCHE-3505891

PATIENT

DRUGS (6)
  1. ATEZOLIZUMAB [Suspect]
     Active Substance: ATEZOLIZUMAB
     Indication: Neoplasm malignant
     Route: 065
  2. NIVOLUMAB [Suspect]
     Active Substance: NIVOLUMAB
     Indication: Neoplasm malignant
     Route: 065
  3. PEMBROLIZUMAB [Suspect]
     Active Substance: PEMBROLIZUMAB
     Indication: Neoplasm malignant
     Route: 065
  4. DURVALUMAB [Suspect]
     Active Substance: DURVALUMAB
     Indication: Neoplasm malignant
     Route: 065
  5. SINTILIMAB [Suspect]
     Active Substance: SINTILIMAB
     Indication: Neoplasm malignant
     Route: 065
  6. CAMRELIZUMAB [Suspect]
     Active Substance: CAMRELIZUMAB
     Indication: Neoplasm malignant
     Route: 065

REACTIONS (25)
  - Haemolysis [Unknown]
  - Encephalitis [Unknown]
  - Pneumonia [Unknown]
  - Cardiotoxicity [Unknown]
  - Hepatitis [Unknown]
  - Cardiac failure [Unknown]
  - Myocardial infarction [Unknown]
  - Thyroiditis [Unknown]
  - Hypothyroidism [Unknown]
  - Hyperthyroidism [Unknown]
  - Skin toxicity [Unknown]
  - Diarrhoea [Unknown]
  - Colitis [Unknown]
  - Hyponatraemia [Unknown]
  - Stomatitis [Unknown]
  - Adrenal insufficiency [Unknown]
  - Nephritis [Unknown]
  - Diabetes mellitus [Unknown]
  - Myasthenia gravis [Unknown]
  - Hypopituitarism [Unknown]
  - Pneumonitis [Unknown]
  - Myocarditis [Unknown]
  - Nausea [Unknown]
  - Vomiting [Unknown]
  - Hypersensitivity [Unknown]
